FAERS Safety Report 18842938 (Version 2)
Quarter: 2021Q2

REPORT INFORMATION
  Report Type: Spontaneous
  Country: US (occurrence: US)
  Receive Date: 20210203
  Receipt Date: 20210422
  Transmission Date: 20210717
  Serious: Yes (Hospitalization, Other)
  Sender: FDA-Public Use
  Company Number: US-ASTRAZENECA-2021A021290

PATIENT
  Age: 818 Month
  Sex: Female
  Weight: 89.4 kg

DRUGS (17)
  1. FASLODEX [Suspect]
     Active Substance: FULVESTRANT
     Indication: BREAST CANCER METASTATIC
     Route: 030
     Dates: start: 201812, end: 201901
  2. CBD [Concomitant]
     Active Substance: CANNABIDIOL
     Indication: PAIN
     Route: 048
  3. VITAMIN D [Concomitant]
     Active Substance: VITAMIN D NOS
     Indication: THYROID FUNCTION TEST ABNORMAL
     Route: 048
  4. FASLODEX [Suspect]
     Active Substance: FULVESTRANT
     Indication: BREAST CANCER METASTATIC
     Dosage: 75 MG,DAILY FOR 21 DAYS
     Route: 048
     Dates: start: 202010
  5. LISINOPRIL HCTZ [Concomitant]
     Active Substance: HYDROCHLOROTHIAZIDE\LISINOPRIL
     Indication: HYPERTENSION
     Route: 048
  6. CBD [Concomitant]
     Active Substance: CANNABIDIOL
     Indication: NAUSEA
     Route: 048
  7. THC [Concomitant]
     Active Substance: DRONABINOL
     Indication: NAUSEA
     Route: 048
  8. MIRALAX [Concomitant]
     Active Substance: POLYETHYLENE GLYCOL 3350
     Indication: CONSTIPATION
     Route: 048
  9. SYNTHROID [Concomitant]
     Active Substance: LEVOTHYROXINE SODIUM
     Indication: THYROID DISORDER
     Route: 048
  10. FASLODEX [Suspect]
     Active Substance: FULVESTRANT
     Indication: BREAST CANCER METASTATIC
     Route: 030
     Dates: start: 201902, end: 201907
  11. FASLODEX [Suspect]
     Active Substance: FULVESTRANT
     Indication: BREAST CANCER METASTATIC
     Route: 030
     Dates: end: 202010
  12. FULVESTRANT. [Suspect]
     Active Substance: FULVESTRANT
     Indication: BREAST CANCER METASTATIC
     Route: 030
     Dates: start: 2020, end: 202010
  13. THC [Concomitant]
     Active Substance: DRONABINOL
     Indication: PAIN
     Route: 048
  14. TYLENOL [Concomitant]
     Active Substance: ACETAMINOPHEN
     Indication: PAIN
     Dosage: AS REQUIRED
     Route: 048
  15. FASLODEX [Suspect]
     Active Substance: FULVESTRANT
     Indication: BREAST CANCER METASTATIC
     Route: 030
     Dates: start: 202005
  16. FASLODEX [Suspect]
     Active Substance: FULVESTRANT
     Indication: BREAST CANCER METASTATIC
     Route: 030
     Dates: end: 202005
  17. FULVESTRANT. [Suspect]
     Active Substance: FULVESTRANT
     Indication: BREAST CANCER METASTATIC
     Dosage: EVERY 28 DAYS (GENERIC)
     Route: 030
     Dates: start: 201907

REACTIONS (14)
  - Malignant neoplasm progression [Not Recovered/Not Resolved]
  - Constipation [Unknown]
  - Feeling abnormal [Recovered/Resolved]
  - Adverse drug reaction [Recovered/Resolved]
  - Dizziness [Recovered/Resolved]
  - Metastases to bone [Unknown]
  - Haemorrhage [Recovered/Resolved]
  - Balance disorder [Recovered/Resolved]
  - Metastases to lymph nodes [Unknown]
  - Neoplasm progression [Unknown]
  - Product dose omission issue [Recovered/Resolved]
  - Colitis ischaemic [Recovered/Resolved]
  - Dysphagia [Unknown]
  - Drug ineffective [Not Recovered/Not Resolved]

NARRATIVE: CASE EVENT DATE: 20190104
